FAERS Safety Report 7737713-X (Version None)
Quarter: 2011Q3

REPORT INFORMATION
  Report Type: 
  Country: None (occurrence: None)
  Receive Date: 20110908
  Receipt Date: 20110829
  Transmission Date: 20111222
  Serious: Yes (Death, Hospitalization, Other)
  Sender: FDA-Public Use
  Company Number: US-BRISTOL-MYERS SQUIBB COMPANY-15948243

PATIENT
  Age: 61 Year
  Sex: Male

DRUGS (13)
  1. AMBIEN [Concomitant]
  2. PRILOSEC [Concomitant]
  3. ZOFRAN [Concomitant]
  4. DEXAMETHASONE [Concomitant]
  5. LEVOTHYROXINE SODIUM [Concomitant]
  6. LOMOTIL [Concomitant]
  7. NYSTATIN [Concomitant]
  8. IPILIMUMAB [Suspect]
     Indication: MALIGNANT MELANOMA
     Dosage: C2 AND C3 HELD
     Route: 042
     Dates: start: 20110526, end: 20110526
  9. MINOCYCLINE HCL [Concomitant]
  10. TEMOZOLOMIDE [Suspect]
     Indication: MALIGNANT MELANOMA
     Dosage: 4 DAYS EVERY 3 WEEKS RESTARTED 21JUL11
     Route: 048
     Dates: start: 20110526
  11. FLOMAX [Concomitant]
  12. IMODIUM [Concomitant]
  13. LEVITRA [Concomitant]

REACTIONS (10)
  - MALNUTRITION [None]
  - DIARRHOEA [None]
  - ATRIAL FIBRILLATION [None]
  - WEIGHT DECREASED [None]
  - CARDIOPULMONARY FAILURE [None]
  - PNEUMONIA [None]
  - COLITIS ULCERATIVE [None]
  - RENAL FAILURE ACUTE [None]
  - SEPSIS [None]
  - HYPERTENSION [None]
